FAERS Safety Report 15488082 (Version 1)
Quarter: 2018Q4

REPORT INFORMATION
  Report Type: Spontaneous
  Country: US (occurrence: US)
  Receive Date: 20181003
  Receipt Date: 20181003
  Transmission Date: 20190205
  Serious: Yes (Hospitalization)
  Sender: FDA-Public Use
  Company Number: None

PATIENT
  Age: 75 Year
  Sex: Male

DRUGS (2)
  1. SPIRONOLACTONE. [Suspect]
     Active Substance: SPIRONOLACTONE
     Indication: HYPERTENSION
     Route: 048
  2. LOSARTAN. [Suspect]
     Active Substance: LOSARTAN
     Indication: HYPERTENSION
     Route: 048

REACTIONS (4)
  - Hyperkalaemia [None]
  - Blood creatinine increased [None]
  - Blood potassium decreased [None]
  - Blood urea increased [None]

NARRATIVE: CASE EVENT DATE: 20180705
